FAERS Safety Report 4666796-9 (Version None)
Quarter: 2005Q2

REPORT INFORMATION
  Report Type: 
  Country: None (occurrence: None)
  Receive Date: 20050519
  Receipt Date: 20040820
  Transmission Date: 20051028
  Serious: Yes (Life-Threatening, Hospitalization, Congenital Anomaly, Other)
  Sender: FDA-Public Use
  Company Number: ES-MERCK-0408ESP00013B1

PATIENT
  Age: -3 Day
  Sex: Female
  Weight: 2 kg

DRUGS (3)
  1. MAXALT [Suspect]
     Indication: MIGRAINE
     Dates: start: 20040809, end: 20040809
  2. MAXALT [Suspect]
     Dates: start: 20040813, end: 20040813
  3. FOSFOMYCIN TROMETHAMINE [Concomitant]
     Indication: URINARY TRACT INFECTION
     Dates: start: 20040818, end: 20040819

REACTIONS (10)
  - ATRIAL SEPTAL DEFECT [None]
  - BRADYCARDIA FOETAL [None]
  - CEREBRAL CYST [None]
  - CONGENITAL ARTERIAL MALFORMATION [None]
  - DRUG EXPOSURE DURING PREGNANCY [None]
  - FOETAL GROWTH RETARDATION [None]
  - PATENT DUCTUS ARTERIOSUS [None]
  - PREMATURE BABY [None]
  - SMALL FOR DATES BABY [None]
  - UMBILICAL CORD AROUND NECK [None]
